FAERS Safety Report 26124371 (Version 2)
Quarter: 2025Q4

REPORT INFORMATION
  Report Type: Spontaneous
  Country: EU (occurrence: EU)
  Receive Date: 20251205
  Receipt Date: 20251218
  Transmission Date: 20260117
  Serious: Yes (Other)
  Sender: Atnahs Healthcare
  Company Number: EU-TEVA-VS-3392908

PATIENT

DRUGS (6)
  1. NAPROSYN [Suspect]
     Active Substance: NAPROXEN
     Indication: Rheumatoid arthritis
     Dosage: OCCASIONAL CONSUMPTION OF NAPROXEN DURING FLARE-UPS
     Route: 065
  2. NEBIVOLOL [Suspect]
     Active Substance: NEBIVOLOL
     Indication: Migraine
     Dosage: UNK
     Route: 048
  3. PREDNISONE [Concomitant]
     Active Substance: PREDNISONE
     Indication: Rheumatoid arthritis
     Dosage: UNK
  4. AMITRIPTYLINE [Concomitant]
     Active Substance: AMITRIPTYLINE
     Indication: Migraine
     Dosage: UNK
  5. TRAMADOL [Concomitant]
     Active Substance: TRAMADOL
     Indication: Migraine
     Dosage: UNK
  6. HYDROXYCHLOROQUINE [Concomitant]
     Active Substance: HYDROXYCHLOROQUINE
     Indication: Rheumatoid arthritis
     Dosage: UNK

REACTIONS (3)
  - Colitis [Unknown]
  - Colitis microscopic [Unknown]
  - Product use in unapproved indication [Unknown]
